FAERS Safety Report 11178437 (Version 1)
Quarter: 2015Q2

REPORT INFORMATION
  Report Type: Spontaneous
  Country: US (occurrence: US)
  Receive Date: 20150610
  Receipt Date: 20150610
  Transmission Date: 20150821
  Serious: Yes (Hospitalization)
  Sender: FDA-Public Use
  Company Number: US-INCYTE CORPORATION-2015IN002465

PATIENT
  Age: 67 Year
  Sex: Female

DRUGS (1)
  1. JAKAFI [Suspect]
     Active Substance: RUXOLITINIB
     Indication: POLYCYTHAEMIA VERA
     Dosage: NOT SPECIFIED
     Route: 048

REACTIONS (3)
  - Pulmonary oedema [Unknown]
  - Cardiogenic shock [Unknown]
  - Hypotension [Unknown]

NARRATIVE: CASE EVENT DATE: 201506
